FAERS Safety Report 5855667-8 (Version None)
Quarter: 2008Q3

REPORT INFORMATION
  Report Type: 
  Country: None (occurrence: None)
  Receive Date: 20080823
  Receipt Date: 20080815
  Transmission Date: 20090109
  Serious: Yes (Other)
  Sender: FDA-Public Use
  Company Number: US-ELI_LILLY_AND_COMPANY-US200807004703

PATIENT
  Sex: Male

DRUGS (2)
  1. HUMALOG [Suspect]
  2. LOTENSIN [Concomitant]
     Dosage: 10 MG, DAILY (1/D)

REACTIONS (2)
  - BLINDNESS [None]
  - DIABETIC RETINOPATHY [None]
